FAERS Safety Report 7142474-1 (Version None)
Quarter: 2010Q4

REPORT INFORMATION
  Report Type: 
  Country: None (occurrence: None)
  Receive Date: 20101207
  Receipt Date: 20101129
  Transmission Date: 20110411
  Serious: Yes (Death, Hospitalization)
  Sender: FDA-Public Use
  Company Number: SK-CELGENEUS-260-21880-10111069

PATIENT
  Age: 81 Year
  Sex: Male

DRUGS (2)
  1. REVLIMID [Suspect]
     Indication: MULTIPLE MYELOMA
     Route: 048
     Dates: start: 20100501
  2. ANTIHYPERTENSIVES [Concomitant]
     Route: 065

REACTIONS (1)
  - LEUKAEMIA PLASMACYTIC [None]
